FAERS Safety Report 23686130 (Version 1)
Quarter: 2024Q1

REPORT INFORMATION
  Report Type: Spontaneous
  Country: FR (occurrence: FR)
  Receive Date: 20240329
  Receipt Date: 20240329
  Transmission Date: 20240410
  Serious: Yes (Hospitalization)
  Sender: FDA-Public Use
  Company Number: FR-AFSSAPS-PA2023002167

PATIENT
  Age: 70 Year
  Sex: Male
  Weight: 70 kg

DRUGS (4)
  1. OXALIPLATIN [Suspect]
     Active Substance: OXALIPLATIN
     Indication: Mantle cell lymphoma stage IV
     Dosage: 100 MILLIGRAM/SQ. METER, CYCLICAL, 200.00 MG TOTAL DOSE IV ON D
     Route: 040
     Dates: start: 20230705
  2. DEXAMETHASONE [Suspect]
     Active Substance: DEXAMETHASONE
     Indication: Mantle cell lymphoma stage IV
     Dosage: 20 MILLIGRAM, CYCLICAL, TOTAL DOSE IV OR ORAL FROM D1 TO D4
     Route: 040
     Dates: start: 20230705
  3. RITUXIMAB [Suspect]
     Active Substance: RITUXIMAB
     Indication: Mantle cell lymphoma stage IV
     Dosage: 375 MILLIGRAM/SQ. METER, 1DOSE/1CYCLICAL, 700.00 MG TOTAL DOSE IV ON D1
     Route: 040
     Dates: start: 20230705
  4. CYTARABINE [Suspect]
     Active Substance: CYTARABINE
     Indication: Mantle cell lymphoma stage IV
     Dosage: 1000 MILLIGRAM/SQ. METER, CYCLICAL, (ADJUSTED DOSE) OR 1,900.00 MG TOTAL DOSE IV ON D1 AND D2 (2 DOS
     Route: 040
     Dates: start: 20230705

REACTIONS (1)
  - Condition aggravated [Not Recovered/Not Resolved]

NARRATIVE: CASE EVENT DATE: 20230707
